FAERS Safety Report 7274503-9 (Version None)
Quarter: 2011Q1

REPORT INFORMATION
  Report Type: 
  Country: None (occurrence: None)
  Receive Date: 20110204
  Receipt Date: 20110126
  Transmission Date: 20110831
  Serious: No
  Sender: FDA-Public Use
  Company Number: US-JNJFOC-20110200532

PATIENT
  Sex: Male

DRUGS (4)
  1. FENTANYL-100 [Suspect]
     Indication: CHEST PAIN
     Route: 062
  2. SANDOZ FENTANYL TRANSDERMAL SSTEM [Suspect]
     Indication: CHEST PAIN
     Dosage: EVERY 48 TO 72 HOURS AS NEEDED
     Route: 062
  3. FENTANYL CITRATE [Suspect]
     Indication: CHEST PAIN
     Route: 062
  4. FENTANYL-100 [Suspect]
     Route: 062

REACTIONS (6)
  - PRODUCT ADHESION ISSUE [None]
  - ABNORMAL FAECES [None]
  - PRODUCT QUALITY ISSUE [None]
  - SENSORY DISTURBANCE [None]
  - INCORRECT DRUG ADMINISTRATION RATE [None]
  - APPLICATION SITE REACTION [None]
